FAERS Safety Report 16188093 (Version 1)
Quarter: 2019Q2

REPORT INFORMATION
  Report Type: Report from Study
  Country: CN (occurrence: CN)
  Receive Date: 20190412
  Receipt Date: 20190412
  Transmission Date: 20190711
  Serious: Yes (Other)
  Sender: FDA-Public Use
  Company Number: CN-ROCHE-2297657

PATIENT

DRUGS (2)
  1. BEVACIZUMAB. [Suspect]
     Active Substance: BEVACIZUMAB
     Indication: NON-SMALL CELL LUNG CANCER
     Route: 041
  2. ICOTINIB HYDROCHLORIDE [Suspect]
     Active Substance: ICOTINIB HYDROCHLORIDE
     Indication: NON-SMALL CELL LUNG CANCER
     Route: 048

REACTIONS (8)
  - Fatigue [Unknown]
  - Diarrhoea [Unknown]
  - Proteinuria [Unknown]
  - Bone marrow failure [Unknown]
  - Hypertension [Unknown]
  - Haemorrhage [Unknown]
  - Rash [Unknown]
  - Hepatic function abnormal [Unknown]
